FAERS Safety Report 8167090-4 (Version None)
Quarter: 2012Q1

REPORT INFORMATION
  Report Type: 
  Country: None (occurrence: None)
  Receive Date: 20120103
  Receipt Date: 20111111
  Transmission Date: 20120608
  Serious: Yes (Hospitalization)
  Sender: FDA-Public Use
  Company Number: AE-2011-002571

PATIENT
  Age: 54 Year
  Sex: Female
  Weight: 97.5234 kg

DRUGS (9)
  1. AMBIEN CR [Concomitant]
  2. INCIVEK [Suspect]
     Dosage: 2250 MG (750 MG, 3 IN 1 D), ORAL
     Route: 048
     Dates: start: 20110915
  3. RIBAVIRIN [Concomitant]
  4. HYDROCORTISONE CREAM 1% (HYDROCORTISONE) [Concomitant]
  5. ASPIRIN [Concomitant]
  6. PEGASYS [Concomitant]
  7. SERTRALINE HYDROCHLORIDE [Concomitant]
  8. IBUPROFEN [Concomitant]
  9. EXFORGE [Concomitant]

REACTIONS (6)
  - NAUSEA [None]
  - ANAEMIA [None]
  - BLOOD PRESSURE DECREASED [None]
  - VOMITING [None]
  - DIZZINESS [None]
  - FATIGUE [None]
